FAERS Safety Report 6425980-4 (Version None)
Quarter: 2009Q4

REPORT INFORMATION
  Report Type: 
  Country: None (occurrence: None)
  Receive Date: 20091103
  Receipt Date: 20091103
  Transmission Date: 20100525
  Serious: Yes (Hospitalization)
  Sender: FDA-Public Use
  Company Number: None

PATIENT

DRUGS (1)
  1. LITHIUM CARBONATE [Suspect]
     Dosage: 900 MG EVERYDAY PO
     Route: 048
     Dates: start: 20080829, end: 20080904

REACTIONS (6)
  - ASTHENIA [None]
  - BLOOD CREATININE INCREASED [None]
  - DEHYDRATION [None]
  - LETHARGY [None]
  - SEDATION [None]
  - THERAPEUTIC AGENT TOXICITY [None]
